FAERS Safety Report 6707983-5 (Version None)
Quarter: 2010Q2

REPORT INFORMATION
  Report Type: 
  Country: None (occurrence: None)
  Receive Date: 20100503
  Receipt Date: 20081104
  Transmission Date: 20101027
  Serious: Yes (Other)
  Sender: FDA-Public Use
  Company Number: BR-BAYER-200821669LA

PATIENT
  Age: 20 Year
  Sex: Male
  Weight: 83 kg

DRUGS (3)
  1. BETAFERON [Suspect]
     Indication: MULTIPLE SCLEROSIS
     Route: 058
     Dates: start: 20081027
  2. ROXETIN [Concomitant]
     Indication: DEPRESSION
     Dosage: TOTAL DAILY DOSE: 20 MG  UNIT DOSE: 20 MG
     Route: 048
     Dates: start: 20081009, end: 20081128
  3. AMITRIPTYLINE WITH PIZOTIFEN [Concomitant]
     Indication: STRESS
     Route: 048
     Dates: start: 20081009

REACTIONS (7)
  - CHILLS [None]
  - DIZZINESS [None]
  - LABYRINTHITIS [None]
  - MALAISE [None]
  - MUSCULAR WEAKNESS [None]
  - PAIN [None]
  - RETCHING [None]
